FAERS Safety Report 18676350 (Version 1)
Quarter: 2020Q4

REPORT INFORMATION
  Report Type: Spontaneous
  Country: US (occurrence: US)
  Receive Date: 20201228
  Receipt Date: 20201228
  Transmission Date: 20210114
  Serious: Yes (Death)
  Sender: FDA-Public Use
  Company Number: None

PATIENT
  Age: 58 Year
  Sex: Male

DRUGS (6)
  1. OLMESA MEDOX [Concomitant]
  2. METOPROL TAR [Concomitant]
  3. NOVOLIN NOS [Concomitant]
     Active Substance: INSULIN HUMAN
  4. SIMVASTATIN. [Concomitant]
     Active Substance: SIMVASTATIN
  5. CAPECITABINE 500MG [Suspect]
     Active Substance: CAPECITABINE
     Indication: BONE CANCER
     Route: 048
     Dates: start: 20200930, end: 202012
  6. METFORMIN [Concomitant]
     Active Substance: METFORMIN HYDROCHLORIDE

REACTIONS (1)
  - Death [None]
